FAERS Safety Report 5787564-0 (Version None)
Quarter: 2008Q2

REPORT INFORMATION
  Report Type: 
  Country: None (occurrence: None)
  Receive Date: 20080625
  Receipt Date: 20080615
  Transmission Date: 20081010
  Serious: Yes (Life-Threatening, Hospitalization)
  Sender: FDA-Public Use
  Company Number: ID-JNJFOC-20080604353

PATIENT
  Age: 14 Year
  Sex: Female
  Weight: 50 kg

DRUGS (7)
  1. REMICADE [Suspect]
     Route: 042
  2. REMICADE [Suspect]
     Route: 042
  3. REMICADE [Suspect]
     Route: 042
  4. REMICADE [Suspect]
     Route: 042
  5. REMICADE [Suspect]
     Indication: PSORIATIC ARTHROPATHY
     Route: 042
  6. METHOTREXATE [Concomitant]
     Indication: PSORIATIC ARTHROPATHY
     Route: 048
  7. DIPHENHYDRAMINE HCL [Concomitant]
     Indication: PREMEDICATION

REACTIONS (2)
  - ANAPHYLACTIC SHOCK [None]
  - INFUSION RELATED REACTION [None]
